FAERS Safety Report 6856913-4 (Version None)
Quarter: 2010Q3

REPORT INFORMATION
  Report Type: 
  Country: None (occurrence: None)
  Receive Date: 20100714
  Receipt Date: 20100629
  Transmission Date: 20110219
  Serious: Yes (Death, Hospitalization)
  Sender: FDA-Public Use
  Company Number: 2010002539

PATIENT
  Age: 75 Year
  Sex: Male

DRUGS (8)
  1. TARCEVA [Suspect]
     Indication: LUNG SQUAMOUS CELL CARCINOMA STAGE UNSPECIFIED
     Dosage: (150 MG, QD), ORAL
     Route: 048
     Dates: start: 20100414, end: 20100609
  2. TS-1 [Suspect]
     Indication: LUNG SQUAMOUS CELL CARCINOMA STAGE UNSPECIFIED
     Dosage: (80 MG, 2 D), ORAL
     Route: 048
     Dates: start: 20100414, end: 20100609
  3. CHLORPROMAZINE HCL [Concomitant]
  4. MIYARI BACTERIA (MIYARI BACTERIA) [Concomitant]
  5. ROHYPNOL (FLUNITRAZEPAM) [Concomitant]
  6. LOXOPROFEN (LOXOPROFEN) [Concomitant]
  7. ANOXAN (AMOXAPINE) [Concomitant]
  8. MUCOSTA (REBAMIPIDE) [Concomitant]

REACTIONS (13)
  - BLOOD BILIRUBIN INCREASED [None]
  - DECREASED APPETITE [None]
  - DEHYDRATION [None]
  - DEPRESSED LEVEL OF CONSCIOUSNESS [None]
  - GASTRIC ULCER HAEMORRHAGE [None]
  - HEPATIC FUNCTION ABNORMAL [None]
  - INFLAMMATION [None]
  - INTRACARDIAC THROMBUS [None]
  - PNEUMONIA [None]
  - PULMONARY EMBOLISM [None]
  - PULMONARY THROMBOSIS [None]
  - RASH [None]
  - REFUSAL OF TREATMENT BY PATIENT [None]
